FAERS Safety Report 8550810 (Version 5)
Quarter: 2013Q4

REPORT INFORMATION
  Report Type: Spontaneous
  Country: US (occurrence: US)
  Receive Date: 20120508
  Receipt Date: 20131031
  Transmission Date: 20140711
  Serious: Yes (Hospitalization)
  Sender: FDA-Public Use
  Company Number: US-PFIZER INC-2012107795

PATIENT
  Age: 76 Year
  Sex: Female
  Weight: 49.62 kg

DRUGS (6)
  1. VFEND [Suspect]
     Indication: ASPERGILLUS INFECTION
     Dosage: 200 MG, 2X/DAY
  2. VFEND [Suspect]
     Indication: BRONCHOPULMONARY ASPERGILLOSIS
     Dosage: 50 MG, UNK
     Dates: start: 20090904, end: 20131009
  3. VFEND [Suspect]
     Indication: TRIGEMINAL NEURALGIA
     Dosage: UNK
     Dates: end: 20130919
  4. MEDROL DOSEPAK [Concomitant]
     Dosage: 4 MG, (1 OF 4 MG AS DIRECTED)
     Route: 048
     Dates: start: 20130919
  5. GABAPENTIN [Concomitant]
     Dosage: 100 MG, (120 OF 100 MG I-III CAPS PO Q8H)
     Route: 048
     Dates: start: 20130919
  6. PREDNISONE [Concomitant]
     Indication: LEUKOCYTOSIS
     Dosage: 5 MG, UNK

REACTIONS (11)
  - Cellulitis [Recovering/Resolving]
  - Migraine [Recovering/Resolving]
  - Mobility decreased [Recovering/Resolving]
  - Hypertension [Recovering/Resolving]
  - Pain [Recovering/Resolving]
  - Dizziness [Recovering/Resolving]
  - Arthralgia [Recovering/Resolving]
  - Oedema peripheral [Recovering/Resolving]
  - Joint swelling [Recovering/Resolving]
  - Rash [Recovering/Resolving]
  - Facial pain [Recovering/Resolving]
